FAERS Safety Report 6954980-0 (Version None)
Quarter: 2010Q3

REPORT INFORMATION
  Report Type: 
  Country: None (occurrence: None)
  Receive Date: 20100830
  Receipt Date: 20100825
  Transmission Date: 20110219
  Serious: Yes (Death)
  Sender: FDA-Public Use
  Company Number: GR-ASTRAZENECA-2010SE40163

PATIENT
  Age: 36 Year
  Sex: Male
  Weight: 100 kg

DRUGS (3)
  1. SEROQUEL [Suspect]
     Indication: SCHIZOPHRENIA
     Route: 048
     Dates: start: 20080101
  2. ALOPERIDIN [Concomitant]
     Indication: SCHIZOPHRENIA
     Route: 048
     Dates: start: 20100701
  3. AKINETON [Concomitant]
     Route: 048

REACTIONS (1)
  - ACUTE MYOCARDIAL INFARCTION [None]
